FAERS Safety Report 6550552-0 (Version None)
Quarter: 2010Q1

REPORT INFORMATION
  Report Type: 
  Country: None (occurrence: None)
  Receive Date: 20100122
  Receipt Date: 20100122
  Transmission Date: 20100710
  Serious: No
  Sender: FDA-Public Use
  Company Number: None

PATIENT
  Age: 31 Year
  Sex: Female
  Weight: 85.7298 kg

DRUGS (5)
  1. ROLAIDS [Suspect]
     Indication: DYSPEPSIA
     Dosage: 2-4 TABLETS 2-4 TIMES PER DAY PO
     Route: 048
     Dates: start: 20091212, end: 20091225
  2. WELLBUTRIN [Concomitant]
  3. ABILIFY [Concomitant]
  4. AMBIEN [Concomitant]
  5. IBUPROFEN [Concomitant]

REACTIONS (5)
  - ABDOMINAL PAIN UPPER [None]
  - DIARRHOEA [None]
  - NAUSEA [None]
  - PRODUCT QUALITY ISSUE [None]
  - VOMITING [None]
